FAERS Safety Report 7584855-8 (Version None)
Quarter: 2011Q2

REPORT INFORMATION
  Report Type: 
  Country: None (occurrence: None)
  Receive Date: 20110630
  Receipt Date: 20110628
  Transmission Date: 20111010
  Serious: Yes (Death)
  Sender: FDA-Public Use
  Company Number: PHHY2011DE09146

PATIENT
  Sex: Female

DRUGS (2)
  1. ZOMETA [Suspect]
     Indication: BONE DISORDER
     Dosage: 04 MG EVERY 04 WEEKS
     Dates: start: 20100331
  2. ZOMETA [Suspect]
     Dosage: 04 MG EVERY 04 WEEKS
     Dates: start: 20100913

REACTIONS (3)
  - METASTASES TO CENTRAL NERVOUS SYSTEM [None]
  - CACHEXIA [None]
  - NEOPLASM MALIGNANT [None]
